FAERS Safety Report 9224474 (Version 1)
Quarter: 2013Q1

REPORT INFORMATION
  Report Type: Spontaneous
  Country: US (occurrence: None)
  Receive Date: 20120912
  Receipt Date: 20120912
  Transmission Date: 20140127
  Serious: No
  Sender: FDA-Public Use
  Company Number: 2012SP025874

PATIENT
  Sex: 0

DRUGS (3)
  1. VICTRELIS (200 MG) [Suspect]
     Indication: PRODUCT USED FOR UNKNOWN INDICATION
  2. PEGINTRON [Suspect]
  3. RIBAVIRIN [Suspect]
     Indication: PRODUCT USED FOR UNKNOWN INDICATION

REACTIONS (1)
  - Glomerulonephritis acute [None]
